FAERS Safety Report 5027902-X (Version None)
Quarter: 2006Q2

REPORT INFORMATION
  Report Type: 
  Country: None (occurrence: None)
  Receive Date: 20060616
  Receipt Date: 20060608
  Transmission Date: 20061013
  Serious: Yes (Hospitalization)
  Sender: FDA-Public Use
  Company Number: US-MERCK-0606USA01719

PATIENT
  Age: 73 Year
  Sex: Male

DRUGS (5)
  1. HYDRODIURIL [Suspect]
     Route: 048
  2. CLONIDINE [Concomitant]
     Route: 065
  3. ATENOLOL [Concomitant]
     Route: 065
  4. COZAAR [Suspect]
     Route: 048
  5. POTASSIUM (UNSPECIFIED) [Concomitant]
     Route: 065

REACTIONS (4)
  - CARDIAC FAILURE CONGESTIVE [None]
  - DRUG INEFFECTIVE [None]
  - PRIMARY HYPERALDOSTERONISM [None]
  - RENAL FAILURE [None]
